FAERS Safety Report 5864524-2 (Version None)
Quarter: 2008Q3

REPORT INFORMATION
  Report Type: 
  Country: None (occurrence: None)
  Receive Date: 20080829
  Receipt Date: 20080821
  Transmission Date: 20090109
  Serious: Yes (Other)
  Sender: FDA-Public Use
  Company Number: JP-ABBOTT-07P-087-0416329-00

PATIENT
  Age: 70 Year
  Sex: Male

DRUGS (2)
  1. LEUPROLIDE ACETATE [Suspect]
     Indication: PROSTATE CANCER STAGE I
     Route: 058
     Dates: start: 20060213
  2. CHLORMADINONE ACETATE TAB [Concomitant]
     Indication: PROSTATE CANCER STAGE I
     Route: 048
     Dates: start: 20070521

REACTIONS (1)
  - RENAL FAILURE CHRONIC [None]
